FAERS Safety Report 8556631-0 (Version None)
Quarter: 2012Q3

REPORT INFORMATION
  Report Type: 
  Country: None (occurrence: None)
  Receive Date: 20120719
  Receipt Date: 20120704
  Transmission Date: 20120928
  Serious: Yes (Hospitalization, Other)
  Sender: FDA-Public Use
  Company Number: MCA-N-12-083/03

PATIENT
  Age: 69 Year
  Sex: Male

DRUGS (1)
  1. OLANZAPINE [Suspect]
     Indication: HALLUCINATION
     Dosage: 5 MG, QD AND ORAL
     Route: 048
     Dates: start: 20060101, end: 20060101

REACTIONS (3)
  - ATRIOVENTRICULAR BLOCK COMPLETE [None]
  - NEURODERMATITIS [None]
  - HYPOTHERMIA [None]
